FAERS Safety Report 11906648 (Version 2)
Quarter: 2016Q1

REPORT INFORMATION
  Report Type: Spontaneous
  Country: FR (occurrence: FR)
  Receive Date: 20160111
  Receipt Date: 20160119
  Transmission Date: 20160526
  Serious: Yes (Hospitalization)
  Sender: FDA-Public Use
  Company Number: FR-GLAXOSMITHKLINE-FR2016GSK002358

PATIENT
  Age: 74 Year
  Sex: Female
  Weight: 59 kg

DRUGS (13)
  1. ESIDREX [Suspect]
     Active Substance: HYDROCHLOROTHIAZIDE
     Indication: PRODUCT USED FOR UNKNOWN INDICATION
     Dosage: UNK
     Route: 048
     Dates: end: 201512
  2. OROZAMUDOL [Suspect]
     Active Substance: TRAMADOL
     Indication: PRODUCT USED FOR UNKNOWN INDICATION
     Dosage: UNK
     Dates: end: 20151218
  3. AERIUS [Concomitant]
     Active Substance: DESLORATADINE
  4. ACETATE D3 [Concomitant]
  5. KARDEGIC [Concomitant]
     Active Substance: ASPIRIN LYSINE
  6. INEXIUM [Concomitant]
     Active Substance: ESOMEPRAZOLE
  7. APROVEL [Concomitant]
     Active Substance: IRBESARTAN
  8. ZOVIRAX [Suspect]
     Active Substance: ACYCLOVIR
     Indication: HERPES ZOSTER
     Dosage: UNK
     Route: 048
     Dates: start: 2015, end: 2015
  9. UVEDOSE [Concomitant]
     Active Substance: CHOLECALCIFEROL
  10. TENORMIN [Concomitant]
     Active Substance: ATENOLOL
  11. TILCOTIL [Concomitant]
     Active Substance: TENOXICAM
  12. TAHOR [Concomitant]
     Active Substance: ATORVASTATIN CALCIUM
  13. ZAMUDOL [Suspect]
     Active Substance: TRAMADOL HYDROCHLORIDE
     Indication: PRODUCT USED FOR UNKNOWN INDICATION
     Dosage: UNK
     Route: 048
     Dates: end: 20151219

REACTIONS (3)
  - Hyponatraemia [Recovered/Resolved]
  - Cognitive disorder [Recovered/Resolved]
  - Somnolence [Recovered/Resolved]

NARRATIVE: CASE EVENT DATE: 201512
